FAERS Safety Report 22125424 (Version 1)
Quarter: 2023Q1

REPORT INFORMATION
  Report Type: Spontaneous
  Country: US (occurrence: None)
  Receive Date: 20230321
  Receipt Date: 20230321
  Transmission Date: 20230418
  Serious: Yes (Hospitalization)
  Sender: FDA-Public Use
  Company Number: None

PATIENT
  Sex: Female

DRUGS (12)
  1. PULMOZYME [Suspect]
     Active Substance: DORNASE ALFA
     Indication: Cystic fibrosis
     Dosage: FREQUENCY : DAILY;?
     Route: 055
     Dates: start: 20210306
  2. ALLEGRA ALRG TAB 180MG [Concomitant]
  3. CELEBREX CAP 200MG [Concomitant]
  4. CRESTOR TAB 40MG [Concomitant]
  5. FLEXERIL TAB 10MG [Concomitant]
  6. LEVALBUTEROL NEB 1.25MG [Concomitant]
  7. LEVOTHYROXIN TAB 50MCG [Concomitant]
  8. PANTOPRAZOLE TAB 40MG [Concomitant]
  9. RALOXIFENE [Concomitant]
     Active Substance: RALOXIFENE
  10. SINGULAIR TAB 10MG [Concomitant]
  11. SODIUM CHLOR NEB 3% [Concomitant]
  12. TRIKAFTA [Concomitant]
     Active Substance: ELEXACAFTOR\IVACAFTOR\TEZACAFTOR

REACTIONS (1)
  - Pneumonia [None]
